FAERS Safety Report 13101594 (Version 1)
Quarter: 2017Q1

REPORT INFORMATION
  Report Type: Spontaneous
  Country: US (occurrence: US)
  Receive Date: 20170110
  Receipt Date: 20170110
  Transmission Date: 20170428
  Serious: No
  Sender: FDA-Public Use
  Company Number: None

PATIENT
  Age: 60 Year
  Sex: Female

DRUGS (1)
  1. IBRANCE [Suspect]
     Active Substance: PALBOCICLIB
     Indication: PENILE CANCER
     Dosage: FREQUENCY DAILY X 21 DAYS ON, 7
     Route: 048
     Dates: start: 20150505, end: 20170108

REACTIONS (2)
  - Tumour marker increased [None]
  - Drug ineffective [None]

NARRATIVE: CASE EVENT DATE: 20170108
